FAERS Safety Report 7292603-4 (Version None)
Quarter: 2011Q1

REPORT INFORMATION
  Report Type: 
  Country: None (occurrence: None)
  Receive Date: 20110215
  Receipt Date: 20110211
  Transmission Date: 20110831
  Serious: No
  Sender: FDA-Public Use
  Company Number: US-JNJFOC-20110204066

PATIENT
  Age: 41 Year
  Sex: Female

DRUGS (1)
  1. DURAGESIC-50 [Suspect]
     Indication: PAIN
     Route: 062

REACTIONS (4)
  - DEPRESSION [None]
  - PAIN [None]
  - WITHDRAWAL SYNDROME [None]
  - INAPPROPRIATE SCHEDULE OF DRUG ADMINISTRATION [None]
